FAERS Safety Report 14240382 (Version 1)
Quarter: 2017Q4

REPORT INFORMATION
  Report Type: Spontaneous
  Country: BR (occurrence: BR)
  Receive Date: 20171130
  Receipt Date: 20171130
  Transmission Date: 20180321
  Serious: Yes (Other)
  Sender: FDA-Public Use
  Company Number: BR-PFIZER INC-2017496316

PATIENT
  Age: 59 Year
  Sex: Female
  Weight: 49 kg

DRUGS (1)
  1. PACLITAXEL. [Suspect]
     Active Substance: PACLITAXEL
     Indication: NEOPLASM SKIN
     Dosage: 259 MG, BIWEEKLY, IV INTERMITTENT 180 MINUTES
     Route: 042
     Dates: start: 20170915, end: 20171027

REACTIONS (7)
  - Presyncope [Recovering/Resolving]
  - Rash [Recovering/Resolving]
  - Erythema [Recovering/Resolving]
  - Hyperhidrosis [Recovering/Resolving]
  - Oxygen saturation decreased [Recovering/Resolving]
  - Bradycardia [Recovering/Resolving]
  - Malaise [Recovering/Resolving]
